FAERS Safety Report 23321012 (Version 1)
Quarter: 2023Q4

REPORT INFORMATION
  Report Type: Spontaneous
  Country: US (occurrence: US)
  Receive Date: 20231220
  Receipt Date: 20231220
  Transmission Date: 20240110
  Serious: Yes (Other)
  Sender: FDA-Public Use
  Company Number: US-009507513-2312USA007147

PATIENT
  Sex: Male

DRUGS (1)
  1. KEYTRUDA [Suspect]
     Active Substance: PEMBROLIZUMAB
     Indication: Lung carcinoma cell type unspecified stage IV
     Route: 042

REACTIONS (9)
  - Atrial fibrillation [Unknown]
  - Pneumonitis [Unknown]
  - Chemotherapy [Unknown]
  - Rash pruritic [Recovered/Resolved]
  - Skin ulcer [Recovered/Resolved]
  - Scab [Recovered/Resolved]
  - Asthenia [Unknown]
  - Feeding disorder [Unknown]
  - Joint swelling [Unknown]
